FAERS Safety Report 7828120-X (Version None)
Quarter: 2011Q4

REPORT INFORMATION
  Report Type: 
  Country: None (occurrence: None)
  Receive Date: 20111018
  Receipt Date: 20111007
  Transmission Date: 20120403
  Serious: Yes (Other)
  Sender: FDA-Public Use
  Company Number: JP-2011-11559

PATIENT
  Age: 66 Year
  Sex: Male
  Weight: 62 kg

DRUGS (5)
  1. TAMSULOSIN HCL [Concomitant]
  2. PLETAL [Suspect]
     Indication: CEREBRAL INFARCTION
     Dosage: 50 MG MILLIGRAM(S), BID, ORAL ; 100 MG MILLIGRAM(S), BID, ORAL
     Route: 048
     Dates: start: 20110421
  3. PLETAL [Suspect]
     Indication: CEREBRAL INFARCTION
     Dosage: 50 MG MILLIGRAM(S), BID, ORAL ; 100 MG MILLIGRAM(S), BID, ORAL
     Route: 048
     Dates: start: 20110414, end: 20110420
  4. LIVALO (PITAVASTATIN SODIUM) [Concomitant]
  5. AMLODIPINE [Concomitant]

REACTIONS (4)
  - SLEEP APNOEA SYNDROME [None]
  - THALAMUS HAEMORRHAGE [None]
  - BLOOD PRESSURE FLUCTUATION [None]
  - CEREBRAL HAEMORRHAGE [None]
